FAERS Safety Report 18344383 (Version 1)
Quarter: 2020Q4

REPORT INFORMATION
  Report Type: Spontaneous
  Country: US (occurrence: US)
  Receive Date: 20201005
  Receipt Date: 20201005
  Transmission Date: 20210114
  Serious: No
  Sender: FDA-Public Use
  Company Number: US-PFIZER INC-2020379691

PATIENT
  Age: 58 Year
  Sex: Female

DRUGS (1)
  1. SUTENT [Suspect]
     Active Substance: SUNITINIB MALATE
     Dosage: 37.5 MG, 1X/DAY
     Dates: start: 201111

REACTIONS (5)
  - Diverticulum intestinal [Unknown]
  - Gastrointestinal angiodysplasia [Unknown]
  - Iron deficiency anaemia [Unknown]
  - Gastrointestinal mucosa hyperaemia [Unknown]
  - Gastrointestinal disorder [Unknown]
